FAERS Safety Report 20979928 (Version 1)
Quarter: 2022Q2

REPORT INFORMATION
  Report Type: Report from Study
  Country: CA (occurrence: CA)
  Receive Date: 20220620
  Receipt Date: 20220620
  Transmission Date: 20220721
  Serious: Yes (Hospitalization, Other)
  Sender: FDA-Public Use
  Company Number: CA-ABBVIE-22K-028-4433958-00

PATIENT
  Sex: Female

DRUGS (2)
  1. RINVOQ [Suspect]
     Active Substance: UPADACITINIB
     Indication: Rheumatoid arthritis
     Route: 048
     Dates: start: 20201114
  2. RINVOQ [Suspect]
     Active Substance: UPADACITINIB
     Route: 048

REACTIONS (3)
  - Cerebrovascular accident [Unknown]
  - COVID-19 [Unknown]
  - Transient ischaemic attack [Unknown]
